FAERS Safety Report 11787427 (Version 3)
Quarter: 2015Q4

REPORT INFORMATION
  Report Type: Spontaneous
  Country: IL (occurrence: IL)
  Receive Date: 20151130
  Receipt Date: 20151228
  Transmission Date: 20160305
  Serious: Yes (Life-Threatening, Hospitalization, Other)
  Sender: FDA-Public Use
  Company Number: PHHY2015IL156529

PATIENT
  Age: 21 Year
  Sex: Female

DRUGS (2)
  1. REVOLADE [Suspect]
     Active Substance: ELTROMBOPAG
     Indication: IMMUNODEFICIENCY
  2. REVOLADE [Suspect]
     Active Substance: ELTROMBOPAG
     Indication: APLASTIC ANAEMIA
     Dosage: 75 MG, QD (DAILY)
     Route: 065
     Dates: start: 20150928

REACTIONS (4)
  - Therapeutic response decreased [Unknown]
  - Pancytopenia [Recovering/Resolving]
  - Malaise [Unknown]
  - Disease progression [Unknown]

NARRATIVE: CASE EVENT DATE: 20151031
